FAERS Safety Report 18147242 (Version 1)
Quarter: 2020Q3

REPORT INFORMATION
  Report Type: Other
  Country: CA (occurrence: CA)
  Receive Date: 20200814
  Receipt Date: 20200814
  Transmission Date: 20201103
  Serious: Yes (Life-Threatening)
  Sender: FDA-Public Use
  Company Number: CA-APOTEX-2020AP015443

PATIENT
  Age: 46 Year
  Sex: Male

DRUGS (8)
  1. VENTOLIN [Concomitant]
     Active Substance: ALBUTEROL SULFATE
     Indication: ASTHMA
     Dosage: 2 DOSAGE FORM
  2. SALINE [SODIUM CHLORIDE] [Concomitant]
     Active Substance: SODIUM CHLORIDE
     Indication: HYPERSENSITIVITY
  3. SALINE [SODIUM CHLORIDE] [Concomitant]
     Active Substance: SODIUM CHLORIDE
     Indication: SINUS DISORDER
     Dosage: 1 DOSAGE FORM, QD
     Route: 045
  4. METFORMIN [Suspect]
     Active Substance: METFORMIN HYDROCHLORIDE
     Indication: DIABETES MELLITUS
     Dosage: 1 DOSAGE FORM, BID
     Route: 048
  5. PULMICORT TURBUHALER [Concomitant]
     Active Substance: BUDESONIDE
     Indication: HYPERSENSITIVITY
  6. SYMBICORT [Concomitant]
     Active Substance: BUDESONIDE\FORMOTEROL FUMARATE DIHYDRATE
     Indication: ASTHMA
     Dosage: 2 DOSAGE FORM, BID
  7. PULMICORT TURBUHALER [Concomitant]
     Active Substance: BUDESONIDE
     Indication: SINUS DISORDER
     Dosage: 1 DOSAGE FORM, QD
     Route: 045
  8. OMALIZUMAB. [Suspect]
     Active Substance: OMALIZUMAB
     Indication: ASTHMA
     Dosage: 375 MILLIGRAM, Q.O.WK.
     Route: 058

REACTIONS (5)
  - Lower respiratory tract congestion [Recovered/Resolved]
  - Initial insomnia [Recovered/Resolved]
  - Urticaria [Recovered/Resolved]
  - Anxiety [Recovered/Resolved]
  - Fear of death [Recovered/Resolved]
